FAERS Safety Report 4475688-X (Version None)
Quarter: 2004Q4

REPORT INFORMATION
  Report Type: 
  Country: None (occurrence: None)
  Receive Date: 20041012
  Receipt Date: 20041006
  Transmission Date: 20050328
  Serious: Yes (Hospitalization)
  Sender: FDA-Public Use
  Company Number: 2004-BP-07684BP

PATIENT
  Age: 75 Year
  Sex: Female

DRUGS (5)
  1. MIRAPEX [Suspect]
     Indication: RESTLESS LEGS SYNDROME
     Dosage: 0.25 MG (NR, OD), PO
     Route: 048
     Dates: start: 20040830
  2. DILANTIN [Suspect]
  3. TRAZODONE HCL [Concomitant]
  4. ARICEPT [Concomitant]
  5. SYNTHROID [Concomitant]

REACTIONS (5)
  - CONVULSION [None]
  - HEART RATE INCREASED [None]
  - HYPOTENSION [None]
  - LOSS OF CONSCIOUSNESS [None]
  - RASH [None]
